FAERS Safety Report 23646433 (Version 1)
Quarter: 2024Q1

REPORT INFORMATION
  Report Type: Spontaneous
  Country: GB (occurrence: GB)
  Receive Date: 20240319
  Receipt Date: 20240319
  Transmission Date: 20240409
  Serious: Yes (Hospitalization, Other)
  Sender: FDA-Public Use
  Company Number: None

PATIENT
  Age: 61 Year

DRUGS (1)
  1. AVATROMBOPAG [Suspect]
     Active Substance: AVATROMBOPAG
     Indication: Immune thrombocytopenia

REACTIONS (1)
  - Cerebrovascular accident [Recovered/Resolved]
